FAERS Safety Report 25687833 (Version 1)
Quarter: 2025Q3

REPORT INFORMATION
  Report Type: Spontaneous
  Country: US (occurrence: US)
  Receive Date: 20250817
  Receipt Date: 20250817
  Transmission Date: 20251020
  Serious: No
  Sender: ELI LILLY AND COMPANY
  Company Number: US-ELI_LILLY_AND_COMPANY-US202508001304

PATIENT
  Age: 50 Year
  Sex: Female

DRUGS (1)
  1. ZEPBOUND [Suspect]
     Active Substance: TIRZEPATIDE
     Indication: Weight control
     Route: 058
     Dates: start: 20250711

REACTIONS (4)
  - Wrong technique in device usage process [Unknown]
  - Decreased appetite [Unknown]
  - Constipation [Recovered/Resolved]
  - Gastrointestinal hypomotility [Unknown]
